FAERS Safety Report 5458044-7 (Version None)
Quarter: 2007Q3

REPORT INFORMATION
  Report Type: 
  Country: None (occurrence: None)
  Receive Date: 20070917
  Receipt Date: 20070917
  Transmission Date: 20080115
  Serious: No
  Sender: FDA-Public Use
  Company Number: None

PATIENT
  Sex: Female
  Weight: 68.0396 kg

DRUGS (1)
  1. CRESTOR [Suspect]
     Indication: HIGH DENSITY LIPOPROTEIN DECREASED
     Dosage: 1/2 TAB - 5 MG 1 TIME DAILY ORAL
     Route: 048
     Dates: start: 20070208, end: 20070815

REACTIONS (4)
  - ABASIA [None]
  - INJURY [None]
  - MUSCLE SPASMS [None]
  - SCIATICA [None]
